FAERS Safety Report 10219183 (Version 1)
Quarter: 2014Q2

REPORT INFORMATION
  Report Type: Spontaneous
  Country: US (occurrence: US)
  Receive Date: 20140605
  Receipt Date: 20140605
  Transmission Date: 20141212
  Serious: Yes (Other)
  Sender: FDA-Public Use
  Company Number: US-ASTRAZENECA-2014SE36763

PATIENT
  Age: 87 Year
  Sex: Female
  Weight: 63.5 kg

DRUGS (9)
  1. ANASTROZOLE [Suspect]
     Indication: BREAST CANCER
     Route: 048
     Dates: start: 2009
  2. SIMVASTATIN [Concomitant]
     Route: 048
  3. VIT B [Concomitant]
     Route: 048
  4. VIT D [Concomitant]
     Route: 048
  5. LASIX [Concomitant]
     Indication: BLOOD PRESSURE ABNORMAL
     Route: 048
  6. VERAPAMIL GENERIC [Concomitant]
     Indication: BLOOD PRESSURE ABNORMAL
     Dosage: 240MG HALF A TAB BID
     Route: 048
  7. FOLIC ACID [Concomitant]
     Dosage: BID
     Route: 048
  8. NASAL SPRAY [Concomitant]
     Indication: THROAT CANCER
     Dosage: BID
     Route: 045
  9. EYE DROPS [Concomitant]
     Indication: GLAUCOMA

REACTIONS (7)
  - Throat cancer [Not Recovered/Not Resolved]
  - Eructation [Not Recovered/Not Resolved]
  - Glaucoma [Not Recovered/Not Resolved]
  - Dysstasia [Not Recovered/Not Resolved]
  - Body height decreased [Not Recovered/Not Resolved]
  - Hypoacusis [Not Recovered/Not Resolved]
  - Blood calcium increased [Not Recovered/Not Resolved]
